FAERS Safety Report 25305576 (Version 1)
Quarter: 2025Q2

REPORT INFORMATION
  Report Type: Spontaneous
  Country: US (occurrence: US)
  Receive Date: 20250513
  Receipt Date: 20250513
  Transmission Date: 20250716
  Serious: Yes (Hospitalization)
  Sender: MACLEODS
  Company Number: US-MACLEODS PHARMA-MAC2025052999

PATIENT

DRUGS (4)
  1. ATORVASTATIN [Suspect]
     Active Substance: ATORVASTATIN
     Indication: Product used for unknown indication
     Route: 065
  2. METOPROLOL TARTRATE [Concomitant]
     Active Substance: METOPROLOL TARTRATE
     Indication: Product used for unknown indication
     Route: 065
  3. ASPIRIN [Concomitant]
     Active Substance: ASPIRIN
     Indication: Product used for unknown indication
     Route: 065
  4. GLIPIZIDE [Concomitant]
     Active Substance: GLIPIZIDE
     Indication: Product used for unknown indication
     Route: 065

REACTIONS (9)
  - Hypertransaminasaemia [Recovering/Resolving]
  - Necrotising myositis [Recovering/Resolving]
  - Myocardial injury [Recovering/Resolving]
  - Atrophy [Recovering/Resolving]
  - Necrosis [Recovering/Resolving]
  - Myocarditis [Recovering/Resolving]
  - Acute kidney injury [Recovering/Resolving]
  - Myopathy [Recovering/Resolving]
  - Rhabdomyolysis [Recovering/Resolving]
